FAERS Safety Report 22604401 (Version 1)
Quarter: 2023Q2

REPORT INFORMATION
  Report Type: Other
  Country: US (occurrence: US)
  Receive Date: 20230615
  Receipt Date: 20230615
  Transmission Date: 20230721
  Serious: Yes (Disabling, Other)
  Sender: FDA-Public Use
  Company Number: US-DEXPHARM-20231430

PATIENT
  Age: 65 Year
  Sex: Female

DRUGS (6)
  1. VENLAFAXINE [Interacting]
     Active Substance: VENLAFAXINE HYDROCHLORIDE
     Indication: Anxiety
     Route: 048
  2. VENLAFAXINE [Interacting]
     Active Substance: VENLAFAXINE HYDROCHLORIDE
     Indication: Anxiety
     Dosage: THE PATIENT TRIED TO DECREASE THE VENLAFAXINE BACK TO 75 MG DAILY, BUT EXPERIENCED WORSENING ANXI...
     Route: 048
  3. VENLAFAXINE [Interacting]
     Active Substance: VENLAFAXINE HYDROCHLORIDE
     Indication: Anxiety
     Dosage: FOUR MONTHS AFTER DISCONTINUING DASATINIB, THE PATIENT WAS ABLE TO DECREASE THE VENLAFAXINE TO 75...
     Route: 048
  4. DASATINIB [Interacting]
     Active Substance: DASATINIB
     Indication: Chronic myeloid leukaemia
     Route: 048
  5. DASATINIB [Interacting]
     Active Substance: DASATINIB
     Indication: Chronic myeloid leukaemia
     Route: 048
  6. PANTOPRAZOLE [Concomitant]
     Active Substance: PANTOPRAZOLE
     Indication: Gastrooesophageal reflux disease
     Dosage: 40MG EVERY OTHER DAY
     Route: 048

REACTIONS (3)
  - Drug interaction [Recovering/Resolving]
  - Anxiety [Recovering/Resolving]
  - Insomnia [Recovering/Resolving]
